FAERS Safety Report 4542317-6 (Version None)
Quarter: 2004Q4

REPORT INFORMATION
  Report Type: 
  Country: None (occurrence: None)
  Receive Date: 20041229
  Receipt Date: 20041214
  Transmission Date: 20050328
  Serious: Yes (Other)
  Sender: FDA-Public Use
  Company Number: 2004110505

PATIENT
  Age: 79 Year
  Sex: Female
  Weight: 61.2356 kg

DRUGS (7)
  1. VISINE TEARS    (GLYCERIN, POLYETHYLENE GLYCOL, HYDROXYPROPYLMETHYLCEL [Suspect]
     Indication: DRY EYE
     Dosage: 1 DROP EACH EYE QD-BID PRN, OPHTHALMIC
     Route: 047
     Dates: end: 20041201
  2. SIMVASTATIN [Concomitant]
  3. CALCIUM WITH VITAMIN D (CALCIUM PHOSPHATE, CALCIUM SODIUM LACTATE, ERO [Suspect]
  4. TOCOPHEROL CONCENTRATE CAP [Concomitant]
  5. ASCORBIC ACID [Concomitant]
  6. TOCOPHEROL/VITAMINS NOS (TOCOPHEROL, VITAMINS NOS) [Concomitant]
  7. METHYLCELLULOSE (METHYLCELLULOSE) [Concomitant]

REACTIONS (1)
  - CATARACT [None]
